FAERS Safety Report 13680754 (Version 1)
Quarter: 2017Q2

REPORT INFORMATION
  Report Type: Spontaneous
  Country: SE (occurrence: TZ)
  Receive Date: 20170623
  Receipt Date: 20170623
  Transmission Date: 20170830
  Serious: Yes (Other)
  Sender: FDA-Public Use
  Company Number: SE-CIPLA LTD.-2017TZ10966

PATIENT

DRUGS (7)
  1. LAMIVUDINE. [Suspect]
     Active Substance: LAMIVUDINE
     Indication: HIV INFECTION WHO CLINICAL STAGE III
     Dosage: UNK, FIRST LINE REGIMEN FOR 78.75 MONTHS
     Route: 065
  2. NEVIRAPINE. [Suspect]
     Active Substance: NEVIRAPINE
     Indication: HIV INFECTION WHO CLINICAL STAGE III
     Dosage: UNK, FIRST LINE REGIMEN FOR 78.75 MONTHS
     Route: 065
  3. TENOFOVIR [Suspect]
     Active Substance: TENOFOVIR
     Indication: HIV INFECTION WHO CLINICAL STAGE III
     Dosage: UNK, SECOND LINE REGIMEN FOR 4.34 MONTHS
     Route: 065
  4. ZIDOVUDINE. [Suspect]
     Active Substance: ZIDOVUDINE
     Indication: HIV INFECTION WHO CLINICAL STAGE III
     Dosage: UNK, FIRST LINE REGIMEN FOR 78.75 MONTHS
     Route: 065
  5. RITONAVIR. [Suspect]
     Active Substance: RITONAVIR
     Indication: HIV INFECTION WHO CLINICAL STAGE III
     Dosage: UNK, SECOND LINE REGIMEN FOR 4.34 MONTHS
     Route: 065
  6. LOPINAVIR [Suspect]
     Active Substance: LOPINAVIR
     Indication: HIV INFECTION WHO CLINICAL STAGE III
     Dosage: UNK, SECOND LINE REGIMEN FOR 4.34 MONTHS
     Route: 065
  7. EMTRICITABINE [Suspect]
     Active Substance: EMTRICITABINE
     Indication: HIV INFECTION WHO CLINICAL STAGE III
     Dosage: UNK, SECOND LINE REGIMEN FOR 4.34 MONTHS
     Route: 065

REACTIONS (1)
  - Treatment failure [Unknown]
